FAERS Safety Report 8557941-3 (Version None)
Quarter: 2012Q3

REPORT INFORMATION
  Report Type: 
  Country: None (occurrence: None)
  Receive Date: 20120801
  Receipt Date: 20120727
  Transmission Date: 20120928
  Serious: Yes (Other)
  Sender: FDA-Public Use
  Company Number: PHHY2012BR065611

PATIENT
  Sex: Female
  Weight: 64 kg

DRUGS (2)
  1. DIOVAN [Suspect]
     Indication: HYPERTENSION
     Dosage: 80 MG, ONE TABLET PER DAY
     Route: 048
  2. LIVIAL [Concomitant]
     Indication: MENOPAUSE
     Dosage: 2.5 MG, ONE TABLET PER DAY
     Route: 048

REACTIONS (3)
  - ROAD TRAFFIC ACCIDENT [None]
  - LIMB INJURY [None]
  - LABYRINTHITIS [None]
